FAERS Safety Report 5586912-4 (Version None)
Quarter: 2008Q1

REPORT INFORMATION
  Report Type: 
  Country: None (occurrence: None)
  Receive Date: 20080108
  Receipt Date: 20080108
  Transmission Date: 20080703
  Serious: Yes (Other)
  Sender: FDA-Public Use
  Company Number: None

PATIENT
  Age: 59 Year
  Sex: Female
  Weight: 79.3795 kg

DRUGS (1)
  1. ATACAND HCT [Suspect]
     Indication: HYPERTENSION
     Dosage: 2 TABLETS EACH 16/12.5 MG 1 TIME DAILY PO
     Route: 048
     Dates: start: 19990601, end: 20070102

REACTIONS (6)
  - ANGIOEDEMA [None]
  - BLOOD PRESSURE INCREASED [None]
  - BURNING SENSATION [None]
  - DYSPNOEA [None]
  - HYPERSENSITIVITY [None]
  - NO THERAPEUTIC RESPONSE [None]
